FAERS Safety Report 24358252 (Version 1)
Quarter: 2024Q3

REPORT INFORMATION
  Report Type: Report from Study
  Country: CA (occurrence: CA)
  Receive Date: 20240924
  Receipt Date: 20240924
  Transmission Date: 20241016
  Serious: Yes (Death, Other)
  Sender: SANDOZ
  Company Number: CA-002147023-NVSC2022CA135050

PATIENT
  Age: 66 Year
  Sex: Male

DRUGS (1)
  1. PIRFENIDONE [Suspect]
     Active Substance: PIRFENIDONE
     Indication: Idiopathic pulmonary fibrosis
     Dosage: 801 MG, TID
     Route: 048
     Dates: start: 20210314

REACTIONS (4)
  - Death [Fatal]
  - Forced vital capacity abnormal [Unknown]
  - Lung diffusion test abnormal [Unknown]
  - Total lung capacity abnormal [Unknown]

NARRATIVE: CASE EVENT DATE: 20220314
